FAERS Safety Report 9325173 (Version 1)
Quarter: 2013Q2

REPORT INFORMATION
  Report Type: Spontaneous
  Country: ES (occurrence: ES)
  Receive Date: 20130604
  Receipt Date: 20130604
  Transmission Date: 20140414
  Serious: Yes (Hospitalization)
  Sender: FDA-Public Use
  Company Number: ES-B.I. PHARMACEUTICALS,INC./RIDGEFIELD-2013-ES-00264ES

PATIENT
  Sex: Male

DRUGS (5)
  1. MIRAPEXIN [Suspect]
     Dates: start: 201305
  2. INSULINA [Concomitant]
  3. ACETYLSALICYLIC ACID [Concomitant]
  4. SIMVASTATINA [Concomitant]
  5. ATENOLOL [Concomitant]

REACTIONS (4)
  - Accidental overdose [Recovered/Resolved]
  - Incontinence [Recovered/Resolved]
  - Hallucination [Recovered/Resolved]
  - Agitation [Recovered/Resolved]
